FAERS Safety Report 4537184-0 (Version None)
Quarter: 2004Q4

REPORT INFORMATION
  Report Type: 
  Country: None (occurrence: None)
  Receive Date: 20041223
  Receipt Date: 20041213
  Transmission Date: 20050328
  Serious: Yes (Hospitalization, Other)
  Sender: FDA-Public Use
  Company Number: PHEH2004US13245

PATIENT
  Age: 49 Year
  Sex: Female

DRUGS (6)
  1. TEGRETOL [Suspect]
     Indication: EPILEPSY
     Dosage: 2400 MG, QD
     Route: 048
     Dates: start: 20000101, end: 20030411
  2. PROZAC [Suspect]
  3. LIPITOR [Concomitant]
  4. PREMARIN [Concomitant]
  5. LASIX [Concomitant]
  6. NORVASC [Concomitant]

REACTIONS (11)
  - APHASIA [None]
  - BRAIN NEOPLASM [None]
  - COMPUTERISED TOMOGRAM ABNORMAL [None]
  - CONVULSION [None]
  - DRUG INTERACTION [None]
  - DRUG LEVEL FLUCTUATING [None]
  - DRUG TOXICITY [None]
  - FEELING ABNORMAL [None]
  - HEPATIC ENZYME INCREASED [None]
  - MOBILITY DECREASED [None]
  - VISUAL DISTURBANCE [None]
